FAERS Safety Report 4268784-3 (Version None)
Quarter: 2004Q1

REPORT INFORMATION
  Report Type: 
  Country: None (occurrence: None)
  Receive Date: 20040112
  Receipt Date: 20040112
  Transmission Date: 20041129
  Serious: No
  Sender: FDA-Public Use
  Company Number: None

PATIENT
  Sex: Female
  Weight: 112.0385 kg

DRUGS (1)
  1. CLOZARIL [Suspect]
     Indication: SCHIZOPHRENIA
     Dosage: 50MG AM + HS ORAL
     Route: 048
     Dates: start: 20031010, end: 20031021

REACTIONS (2)
  - DRUG HYPERSENSITIVITY [None]
  - NEUROTOXICITY [None]
